FAERS Safety Report 18575290 (Version 1)
Quarter: 2020Q4

REPORT INFORMATION
  Report Type: Other
  Country: GB (occurrence: GB)
  Receive Date: 20201203
  Receipt Date: 20201203
  Transmission Date: 20210114
  Serious: Yes (Disabling)
  Sender: FDA-Public Use
  Company Number: GB-BIOCON-BCN-2020-000871

PATIENT
  Age: 61 Year
  Sex: Male
  Weight: 85 kg

DRUGS (3)
  1. LANSOPRAZOLE. [Concomitant]
     Active Substance: LANSOPRAZOLE
  2. ROSUVASTATIN CALCIUM. [Suspect]
     Active Substance: ROSUVASTATIN CALCIUM
     Indication: DISEASE RISK FACTOR
     Dosage: TO LOWER CHOLESTEROL AND RISK OF HEART DISEASE.
     Route: 048
     Dates: start: 20200511, end: 20200602
  3. RAMIPRIL. [Concomitant]
     Active Substance: RAMIPRIL

REACTIONS (3)
  - Arthralgia [Unknown]
  - Myalgia [Recovering/Resolving]
  - Pain in extremity [Unknown]
